FAERS Safety Report 17276816 (Version 2)
Quarter: 2020Q1

REPORT INFORMATION
  Report Type: Report from Study
  Country: IT (occurrence: IT)
  Receive Date: 20200116
  Receipt Date: 20200120
  Transmission Date: 20200409
  Serious: Yes (Hospitalization)
  Sender: FDA-Public Use
  Company Number: IT-MYLANLABS-2020M1004788

PATIENT
  Age: 83 Year
  Sex: Female

DRUGS (7)
  1. DIBASE [Concomitant]
     Active Substance: CHOLECALCIFEROL
     Dosage: 5000 KILO-INTERNATIONAL UNIT
  2. PANTOPRAZOLE [Suspect]
     Active Substance: PANTOPRAZOLE
     Indication: GASTROINTESTINAL DISORDER PROPHYLAXIS
     Dosage: 20 MILLIGRAM, QD
     Route: 048
     Dates: start: 20190101, end: 20190910
  3. EFEXOR [Interacting]
     Active Substance: VENLAFAXINE HYDROCHLORIDE
     Indication: DEPRESSION
     Dosage: 1 DOSAGE FORM, QD
     Route: 048
     Dates: start: 20190101, end: 20190910
  4. CLASTEON [Concomitant]
     Dosage: 200 MILLIGRAM
  5. CARDIOASPIRIN [Concomitant]
     Active Substance: ASPIRIN
     Dosage: UNK
  6. CONTRAMAL [Concomitant]
     Active Substance: TRAMADOL HYDROCHLORIDE
     Dosage: UNK
  7. TALOFEN [Interacting]
     Active Substance: PROMAZINE HYDROCHLORIDE
     Indication: DEPRESSION
     Dosage: 8 GTT DROPS, PRN
     Route: 048
     Dates: start: 20190101, end: 20190910

REACTIONS (3)
  - Electrocardiogram QT prolonged [Unknown]
  - Syncope [Unknown]
  - Drug interaction [Unknown]

NARRATIVE: CASE EVENT DATE: 20190910
